FAERS Safety Report 4270985-5 (Version None)
Quarter: 2004Q1

REPORT INFORMATION
  Report Type: 
  Country: None (occurrence: None)
  Receive Date: 20040114
  Receipt Date: 20040105
  Transmission Date: 20041129
  Serious: Yes (Hospitalization)
  Sender: FDA-Public Use
  Company Number: WAES 0401USA00201

PATIENT
  Age: 52 Year
  Sex: Male

DRUGS (1)
  1. HYDROCORTONE [Suspect]
     Route: 048

REACTIONS (7)
  - BLOOD SODIUM INCREASED [None]
  - DIABETES INSIPIDUS [None]
  - HYPOPITUITARISM [None]
  - HYPOTHALAMO-PITUITARY DISORDERS [None]
  - PITUITARY ENLARGEMENT [None]
  - POLYDIPSIA [None]
  - URINE OSMOLARITY DECREASED [None]
